FAERS Safety Report 4721864-8 (Version None)
Quarter: 2005Q3

REPORT INFORMATION
  Report Type: 
  Country: None (occurrence: None)
  Receive Date: 20050721
  Receipt Date: 20050516
  Transmission Date: 20060218
  Serious: No
  Sender: FDA-Public Use
  Company Number: US-BRISTOL-MYERS SQUIBB COMPANY-12969804

PATIENT
  Age: 88 Year
  Sex: Female
  Weight: 5 kg

DRUGS (3)
  1. COUMADIN [Suspect]
     Indication: HEART RATE IRREGULAR
  2. EVISTA [Concomitant]
  3. PREDNISONE [Concomitant]

REACTIONS (1)
  - INTERNATIONAL NORMALISED RATIO ABNORMAL [None]
